FAERS Safety Report 5032014-5 (Version None)
Quarter: 2006Q2

REPORT INFORMATION
  Report Type: 
  Country: None (occurrence: None)
  Receive Date: 20060619
  Receipt Date: 20060605
  Transmission Date: 20061013
  Serious: Yes (Death)
  Sender: FDA-Public Use
  Company Number: 225977

PATIENT
  Age: 41 Year
  Sex: Male

DRUGS (2)
  1. AVASTIN [Suspect]
     Indication: POEMS SYNDROME
     Dosage: 5 MG/KG, Q2W
  2. RADIATION (RADIATION THERAPY) [Concomitant]

REACTIONS (8)
  - ASCITES [None]
  - CAPILLARY LEAK SYNDROME [None]
  - CIRCULATORY COLLAPSE [None]
  - LABORATORY TEST ABNORMAL [None]
  - MULTI-ORGAN FAILURE [None]
  - OEDEMA [None]
  - PARESIS [None]
  - PNEUMONIA [None]
